FAERS Safety Report 4709591-4 (Version None)
Quarter: 2005Q3

REPORT INFORMATION
  Report Type: 
  Country: None (occurrence: None)
  Receive Date: 20050707
  Receipt Date: 20050615
  Transmission Date: 20060218
  Serious: Yes (Death)
  Sender: FDA-Public Use
  Company Number: US_0506118451

PATIENT
  Age: 6 Year
  Sex: Male
  Weight: 30 kg

DRUGS (7)
  1. ZYPREXA [Suspect]
     Dosage: 5 MG/ 3 DAY
     Dates: start: 20010305
  2. DEPAKOTE [Concomitant]
  3. ADDERALL XR 15 [Concomitant]
  4. RISPERDAL [Concomitant]
  5. DEXTROAMPHETAMINE [Concomitant]
  6. FOCALIN [Concomitant]
  7. NEURONTIN [Concomitant]

REACTIONS (3)
  - DIABETES MELLITUS NON-INSULIN-DEPENDENT [None]
  - HYPERGLYCAEMIA [None]
  - WEIGHT INCREASED [None]
